FAERS Safety Report 14787230 (Version 4)
Quarter: 2018Q2

REPORT INFORMATION
  Report Type: Spontaneous
  Country: US (occurrence: US)
  Receive Date: 20180421
  Receipt Date: 20180518
  Transmission Date: 20180711
  Serious: Yes (Death, Hospitalization)
  Sender: FDA-Public Use
  Company Number: US-VIFOR (INTERNATIONAL) INC.-VIT-2018-03617

PATIENT
  Age: 68 Year
  Sex: Male

DRUGS (22)
  1. LUCENTIS [Concomitant]
     Active Substance: RANIBIZUMAB
  2. DRISDOL [Concomitant]
     Active Substance: ERGOCALCIFEROL
  3. LANTUS [Concomitant]
     Active Substance: INSULIN GLARGINE
  4. NOVOLOG [Concomitant]
     Active Substance: INSULIN ASPART
  5. SIMVASTATIN. [Concomitant]
     Active Substance: SIMVASTATIN
  6. SALBUTAMOL SULFATE [Concomitant]
     Active Substance: ALBUTEROL SULFATE
  7. DALIRESP [Concomitant]
     Active Substance: ROFLUMILAST
  8. PARACETAMOL~~HYDROCODONE BITARTRATE [Concomitant]
  9. SYMBICORT [Concomitant]
     Active Substance: BUDESONIDE\FORMOTEROL FUMARATE DIHYDRATE
  10. COLECALCIFEROL [Concomitant]
     Active Substance: CHOLECALCIFEROL
  11. ACETYLSALICYLIC ACID [Concomitant]
     Active Substance: ASPIRIN
  12. GLUCOSAMINE CHONDROITIN COMPLEX 1500 [Concomitant]
  13. RANITIDINE HYDROCHLORIDE. [Concomitant]
     Active Substance: RANITIDINE HYDROCHLORIDE
  14. VELTASSA [Suspect]
     Active Substance: PATIROMER
     Indication: HYPERKALAEMIA
     Route: 048
     Dates: start: 20160414
  15. LOSARTAN POTASSIUM. [Concomitant]
     Active Substance: LOSARTAN POTASSIUM
  16. OMEPRAZOLE. [Concomitant]
     Active Substance: OMEPRAZOLE
  17. CINNAMOMUM VERUM BARK [Concomitant]
     Active Substance: CINNAMON
  18. DILTIAZEM HYDROCHLORIDE. [Concomitant]
     Active Substance: DILTIAZEM HYDROCHLORIDE
  19. COENZYME Q10 [Concomitant]
     Active Substance: UBIDECARENONE
  20. LABETALOL HYDROCHLORIDE. [Concomitant]
     Active Substance: LABETALOL HYDROCHLORIDE
  21. TUDORZA PRESSAIR [Concomitant]
     Active Substance: ACLIDINIUM BROMIDE
  22. FUROSEMIDE. [Concomitant]
     Active Substance: FUROSEMIDE

REACTIONS (6)
  - Dysphagia [Unknown]
  - Cardiac failure congestive [Recovered/Resolved]
  - Pulmonary congestion [Recovered/Resolved]
  - Renal failure [Recovered/Resolved]
  - Death [Fatal]
  - Urticaria [Unknown]

NARRATIVE: CASE EVENT DATE: 20180406
